FAERS Safety Report 20573175 (Version 1)
Quarter: 2022Q1

REPORT INFORMATION
  Report Type: Spontaneous
  Country: US (occurrence: None)
  Receive Date: 20220309
  Receipt Date: 20220309
  Transmission Date: 20220423
  Serious: No
  Sender: FDA-Public Use
  Company Number: None

PATIENT
  Age: 33 Year
  Sex: Male

DRUGS (1)
  1. HUMIRA [Suspect]
     Active Substance: ADALIMUMAB
     Indication: Colitis ulcerative
     Dosage: 80MG EVERY 2 WEEKS UNDER THE SKIN?
     Route: 058
     Dates: start: 202202

REACTIONS (3)
  - Device malfunction [None]
  - Gastrointestinal disorder [None]
  - Condition aggravated [None]

NARRATIVE: CASE EVENT DATE: 20220201
